FAERS Safety Report 10341330 (Version 9)
Quarter: 2014Q3

REPORT INFORMATION
  Report Type: Spontaneous
  Country: IT (occurrence: IT)
  Receive Date: 20140725
  Receipt Date: 20140918
  Transmission Date: 20150326
  Serious: Yes (Other)
  Sender: FDA-Public Use
  Company Number: IT-ROCHE-1440464

PATIENT
  Age: 61 Year
  Sex: Female
  Weight: 52 kg

DRUGS (32)
  1. ENDOXAN BAXTER [Suspect]
     Active Substance: CYCLOPHOSPHAMIDE
     Route: 042
     Dates: start: 20140722, end: 20140722
  2. ENDOXAN BAXTER [Suspect]
     Active Substance: CYCLOPHOSPHAMIDE
     Dosage: SECOND CYCLE
     Route: 042
     Dates: start: 20140819
  3. VERAPAMIL [Concomitant]
     Active Substance: VERAPAMIL HYDROCHLORIDE
     Route: 048
     Dates: start: 20140724, end: 20140911
  4. OMEPRAZOLE. [Concomitant]
     Active Substance: OMEPRAZOLE
     Route: 048
     Dates: start: 20140418, end: 20140723
  5. ALLOPURINOL. [Concomitant]
     Active Substance: ALLOPURINOL
     Route: 048
     Dates: start: 20140418, end: 20140911
  6. SUPRADYN [Concomitant]
     Active Substance: ASCORBIC ACID\MINERALS\VITAMINS
     Route: 048
     Dates: start: 20140512, end: 20140723
  7. MABTHERA [Suspect]
     Active Substance: RITUXIMAB
     Indication: NON-HODGKIN^S LYMPHOMA
     Route: 042
     Dates: start: 20140519, end: 20140723
  8. VINCRISTINA [Suspect]
     Active Substance: VINCRISTINE
     Indication: NON-HODGKIN^S LYMPHOMA
     Route: 042
     Dates: start: 20140610, end: 20140610
  9. VERAPAMIL [Concomitant]
     Active Substance: VERAPAMIL HYDROCHLORIDE
     Route: 048
     Dates: start: 20000101, end: 20140723
  10. VINCRISTINA [Suspect]
     Active Substance: VINCRISTINE
     Dosage: SECOND CYCLE
     Route: 042
     Dates: start: 20140819
  11. ZANTAC [Concomitant]
     Active Substance: RANITIDINE HYDROCHLORIDE
     Route: 042
     Dates: start: 20140609, end: 20140609
  12. TARGIN [Concomitant]
     Active Substance: NALOXONE HYDROCHLORIDE\OXYCODONE HYDROCHLORIDE
     Route: 048
     Dates: start: 20140610, end: 20140911
  13. MABTHERA [Suspect]
     Active Substance: RITUXIMAB
     Route: 042
     Dates: start: 20140519, end: 20140723
  14. MABTHERA [Suspect]
     Active Substance: RITUXIMAB
     Route: 042
     Dates: start: 20140519, end: 20140812
  15. VINCRISTINA [Suspect]
     Active Substance: VINCRISTINE
     Route: 042
     Dates: start: 20140722, end: 20140722
  16. ADRIBLASTINE [Suspect]
     Active Substance: DOXORUBICIN
     Dosage: SECOND CYCLE
     Route: 042
     Dates: start: 20140819
  17. TRIMETON (CHLORPHENIRAMINE MALEATE) [Concomitant]
     Indication: PREMEDICATION
     Route: 042
     Dates: start: 20140609, end: 20140609
  18. EMEND [Concomitant]
     Active Substance: APREPITANT
     Route: 048
     Dates: start: 20140518, end: 20140911
  19. ENDOXAN BAXTER [Suspect]
     Active Substance: CYCLOPHOSPHAMIDE
     Indication: NON-HODGKIN^S LYMPHOMA
     Route: 042
     Dates: start: 20140610, end: 20140610
  20. PARACETAMOL [Concomitant]
     Active Substance: ACETAMINOPHEN
     Indication: PREMEDICATION
     Route: 042
     Dates: start: 20140609, end: 20140609
  21. PARACETAMOL [Concomitant]
     Active Substance: ACETAMINOPHEN
     Route: 042
     Dates: start: 20140722, end: 20140722
  22. ZANTAC [Concomitant]
     Active Substance: RANITIDINE HYDROCHLORIDE
     Route: 042
     Dates: start: 20140722, end: 20140722
  23. MABTHERA [Suspect]
     Active Substance: RITUXIMAB
     Dosage: SECOND CYCLE
     Route: 042
     Dates: start: 20140819
  24. FLEBOCORTID RICHTER [Concomitant]
     Indication: PREMEDICATION
     Route: 042
     Dates: start: 20140609, end: 20140609
  25. FLEBOCORTID RICHTER [Concomitant]
     Route: 042
     Dates: start: 20140722, end: 20140722
  26. MYCOSTATIN [Concomitant]
     Active Substance: NYSTATIN
     Route: 048
     Dates: start: 20140502, end: 20140723
  27. ADRIBLASTINE [Suspect]
     Active Substance: DOXORUBICIN
     Indication: NON-HODGKIN^S LYMPHOMA
     Route: 042
     Dates: start: 20140610, end: 20140610
  28. ADRIBLASTINE [Suspect]
     Active Substance: DOXORUBICIN
     Route: 042
     Dates: start: 20140722, end: 20140722
  29. TRIMETON (CHLORPHENIRAMINE MALEATE) [Concomitant]
     Route: 042
     Dates: start: 20140722, end: 20140722
  30. URBASON [Concomitant]
     Active Substance: METHYLPREDNISOLONE
     Route: 048
     Dates: start: 20140610, end: 20140610
  31. NORMASE [Concomitant]
     Route: 048
     Dates: start: 20140418, end: 20140911
  32. MYCOSTATIN [Concomitant]
     Active Substance: NYSTATIN
     Dosage: 3 DOSAGE FORMS
     Route: 065

REACTIONS (8)
  - Pyrexia [Recovering/Resolving]
  - Nausea [Not Recovered/Not Resolved]
  - Drop attacks [Not Recovered/Not Resolved]
  - Dysgeusia [Not Recovered/Not Resolved]
  - Leukopenia [Not Recovered/Not Resolved]
  - Paraesthesia [Not Recovered/Not Resolved]
  - Stomatitis [Recovering/Resolving]
  - Mucosal inflammation [Unknown]

NARRATIVE: CASE EVENT DATE: 20140630
